FAERS Safety Report 5262556-9 (Version None)
Quarter: 2007Q1

REPORT INFORMATION
  Report Type: 
  Country: None (occurrence: None)
  Receive Date: 20070309
  Receipt Date: 20070309
  Transmission Date: 20070707
  Serious: Yes (Hospitalization)
  Sender: FDA-Public Use
  Company Number: None

PATIENT
  Sex: Female
  Weight: 81.6475 kg

DRUGS (4)
  1. YASMIN [Suspect]
     Indication: CONTRACEPTION
     Dosage: ORAL DAILY
     Route: 048
  2. ZYRTEC [Concomitant]
  3. NEXIUM [Concomitant]
  4. TOPROL-XL [Concomitant]

REACTIONS (1)
  - PULMONARY EMBOLISM [None]
